FAERS Safety Report 17547244 (Version 3)
Quarter: 2020Q3

REPORT INFORMATION
  Report Type: Report from Study
  Country: AR (occurrence: AR)
  Receive Date: 20200316
  Receipt Date: 20200929
  Transmission Date: 20201102
  Serious: Yes (Hospitalization)
  Sender: FDA-Public Use
  Company Number: NVSC2020AR041043

PATIENT
  Age: 50 Year
  Sex: Female

DRUGS (3)
  1. KISQALI [Suspect]
     Active Substance: RIBOCICLIB
     Indication: BREAST CANCER
     Dosage: 600 MG, QD
     Route: 065
     Dates: start: 20190419, end: 202003
  2. KISQALI [Suspect]
     Active Substance: RIBOCICLIB
     Indication: BREAST CANCER METASTATIC
     Dosage: 400 MG, QD
     Route: 065
  3. KISQALI [Suspect]
     Active Substance: RIBOCICLIB
     Dosage: 600 MG, QD
     Route: 065
     Dates: end: 202002

REACTIONS (10)
  - Facial pain [Unknown]
  - Scoliosis [Unknown]
  - Pain in jaw [Not Recovered/Not Resolved]
  - Memory impairment [Unknown]
  - Neck pain [Unknown]
  - Eye pain [Unknown]
  - Chest pain [Unknown]
  - Pain in jaw [Recovered/Resolved]
  - Ascites [Not Recovered/Not Resolved]
  - Influenza [Recovered/Resolved]

NARRATIVE: CASE EVENT DATE: 201912
